FAERS Safety Report 8496244-2 (Version None)
Quarter: 2012Q3

REPORT INFORMATION
  Report Type: 
  Country: None (occurrence: None)
  Receive Date: 20120709
  Receipt Date: 20120628
  Transmission Date: 20120928
  Serious: Yes (Death, Other)
  Sender: FDA-Public Use
  Company Number: US-JNJFOC-20120700018

PATIENT
  Sex: Female
  Weight: 72.58 kg

DRUGS (4)
  1. RELPAX [Suspect]
     Indication: MIGRAINE
     Route: 065
  2. AN UNKNOWN MEDICATION [Suspect]
     Indication: PRODUCT USED FOR UNKNOWN INDICATION
     Route: 065
  3. ACETAMINOPHEN [Suspect]
     Route: 065
  4. ACETAMINOPHEN [Suspect]
     Indication: HEADACHE
     Route: 065

REACTIONS (6)
  - NEPHROLITHIASIS [None]
  - DRUG INEFFECTIVE [None]
  - CARDIAC ARREST [None]
  - SEPTIC SHOCK [None]
  - URINARY TRACT INFECTION [None]
  - BACTERIAL TEST POSITIVE [None]
